FAERS Safety Report 7086495-6 (Version None)
Quarter: 2010Q4

REPORT INFORMATION
  Report Type: 
  Country: None (occurrence: None)
  Receive Date: 20101105
  Receipt Date: 20101027
  Transmission Date: 20110411
  Serious: Yes (Other)
  Sender: FDA-Public Use
  Company Number: US-PURDUE-USA-2010-0047494

PATIENT
  Sex: Male
  Weight: 63.492 kg

DRUGS (9)
  1. OXYCONTIN [Suspect]
     Indication: CONGENITAL CYSTIC KIDNEY DISEASE
     Dosage: 40 MG, TID
     Route: 048
     Dates: start: 20100915, end: 20100922
  2. OXYCONTIN [Suspect]
     Indication: BACK INJURY
  3. OXYCONTIN [Suspect]
     Indication: NECK INJURY
  4. OXYCODONE HYDROCHLORIDE (SIMILAR TO NDA 22-272) [Concomitant]
     Indication: PRODUCT USED FOR UNKNOWN INDICATION
     Dosage: 15 MG, QID
     Route: 048
  5. SOMA [Concomitant]
     Indication: PRODUCT USED FOR UNKNOWN INDICATION
     Dosage: 350 MG, QID
     Route: 048
  6. IMDUR [Concomitant]
     Indication: PRODUCT USED FOR UNKNOWN INDICATION
     Dosage: 60 MG, BID
     Route: 048
  7. COREG [Concomitant]
     Indication: PRODUCT USED FOR UNKNOWN INDICATION
     Dosage: 12.5 MG, BID
     Route: 048
  8. DIOVAN [Concomitant]
     Indication: PRODUCT USED FOR UNKNOWN INDICATION
     Dosage: 40 MG, BID
     Route: 048
  9. BUMEX [Concomitant]
     Indication: PRODUCT USED FOR UNKNOWN INDICATION
     Dosage: 2 MG, BID
     Route: 048

REACTIONS (3)
  - ATRIAL FIBRILLATION [None]
  - MEDICAL DEVICE COMPLICATION [None]
  - VOMITING [None]
